FAERS Safety Report 6151263-6 (Version None)
Quarter: 2009Q2

REPORT INFORMATION
  Report Type: 
  Country: None (occurrence: None)
  Receive Date: 20090410
  Receipt Date: 20071213
  Transmission Date: 20091009
  Serious: Yes (Death, Hospitalization, Other)
  Sender: FDA-Public Use
  Company Number: US-ASTRAZENECA-2006UW22394

PATIENT
  Age: 12934 Day
  Sex: Male
  Weight: 106.6 kg

DRUGS (22)
  1. SEROQUEL [Suspect]
     Indication: DEPRESSION
     Route: 048
     Dates: start: 20040101, end: 20060101
  2. SEROQUEL [Suspect]
     Indication: ANXIETY
     Route: 048
     Dates: start: 20040101, end: 20060101
  3. INSULIN [Concomitant]
  4. METFORMIN HCL [Concomitant]
  5. DULOXETINE HYDROCHLORIDE [Concomitant]
  6. MIRTAZAPINE [Concomitant]
  7. DIPYRIDAMOLE [Concomitant]
  8. FENOFIBRATE [Concomitant]
  9. LEXAPRO [Concomitant]
  10. OXYCONTIN [Concomitant]
  11. DANTRIUM [Concomitant]
  12. FLEXERIL [Concomitant]
  13. COLACE [Concomitant]
  14. PERCOCET [Concomitant]
  15. VALIUM [Concomitant]
  16. ATIVAN [Concomitant]
  17. TRAZODONE HCL [Concomitant]
  18. PREGABALIN [Concomitant]
  19. MULTIPLE VITAMIN [Concomitant]
  20. LUNESTA [Concomitant]
  21. REPAGLINIDE [Concomitant]
  22. TYLENOL [Concomitant]

REACTIONS (14)
  - CARDIOMEGALY [None]
  - CHEST PAIN [None]
  - DEATH [None]
  - DEPRESSED MOOD [None]
  - DIABETES MELLITUS [None]
  - FEMUR FRACTURE [None]
  - HYPERPHAGIA [None]
  - MAJOR DEPRESSION [None]
  - ONYCHOMYCOSIS [None]
  - PYREXIA [None]
  - SUICIDAL IDEATION [None]
  - URINARY TRACT INFECTION [None]
  - WEIGHT INCREASED [None]
  - WOUND INFECTION [None]
